FAERS Safety Report 6412153-4 (Version None)
Quarter: 2009Q4

REPORT INFORMATION
  Report Type: 
  Country: None (occurrence: None)
  Receive Date: 20091023
  Receipt Date: 20091019
  Transmission Date: 20100525
  Serious: Yes (Hospitalization, Congenital Anomaly)
  Sender: FDA-Public Use
  Company Number: A0681165A

PATIENT
  Sex: Male

DRUGS (13)
  1. PAXIL CR [Suspect]
     Indication: DEPRESSION
     Dosage: 37.5MG PER DAY
     Dates: start: 20011201, end: 20060201
  2. PAXIL [Suspect]
     Indication: DRUG USE FOR UNKNOWN INDICATION
     Dosage: 20MG PER DAY
     Dates: start: 20010101
  3. VITAMIN TAB [Concomitant]
  4. KEFLEX [Concomitant]
     Dates: start: 20060412
  5. LEXAPRO [Concomitant]
  6. ACETAMINOPHEN [Concomitant]
  7. AMOXICILLIN [Concomitant]
     Dates: start: 20060301
  8. PHENERGAN HCL [Concomitant]
     Dates: start: 20060301
  9. NEURONTIN [Concomitant]
  10. TRAZODONE [Concomitant]
  11. MONISTAT [Concomitant]
  12. ACYCLOVIR [Concomitant]
  13. PEPCID [Concomitant]

REACTIONS (4)
  - CLEFT LIP AND PALATE [None]
  - CONGENITAL PHARYNGEAL ANOMALY [None]
  - DRUG EXPOSURE DURING PREGNANCY [None]
  - ORAL CAVITY FISTULA [None]
